FAERS Safety Report 13927562 (Version 4)
Quarter: 2017Q4

REPORT INFORMATION
  Report Type: Spontaneous
  Country: US (occurrence: US)
  Receive Date: 20170901
  Receipt Date: 20171108
  Transmission Date: 20180320
  Serious: No
  Sender: FDA-Public Use
  Company Number: PHEH2017US026806

PATIENT
  Sex: Male

DRUGS (8)
  1. LORAZEPAM ACTAVIS 2MG [Suspect]
     Active Substance: LORAZEPAM
     Dosage: 3 DF, QD
     Route: 065
  2. XTANDI [Suspect]
     Active Substance: ENZALUTAMIDE
     Indication: PROSTATE CANCER
     Dosage: 160 MG, QD (4DF)
     Route: 048
     Dates: start: 20170610
  3. XTANDI [Suspect]
     Active Substance: ENZALUTAMIDE
     Dosage: 160 MG, QD
     Route: 048
  4. XTANDI [Suspect]
     Active Substance: ENZALUTAMIDE
     Dosage: 80 MG, UNK
     Route: 048
  5. LORAZEPAM ACTAVIS 2MG [Suspect]
     Active Substance: LORAZEPAM
     Dosage: 4 DF, QD
     Route: 065
  6. XTANDI [Suspect]
     Active Substance: ENZALUTAMIDE
     Dosage: 120 MG, UNK
     Route: 048
  7. LORAZEPAM ACTAVIS 2MG [Suspect]
     Active Substance: LORAZEPAM
     Indication: PRODUCT USED FOR UNKNOWN INDICATION
     Dosage: 4 DF, QD
     Route: 065
  8. LORAZEPAM ACTAVIS 2MG [Suspect]
     Active Substance: LORAZEPAM
     Dosage: TAPERING DOSE
     Route: 065

REACTIONS (22)
  - Pain in extremity [Unknown]
  - Pollakiuria [Unknown]
  - Back pain [Unknown]
  - Paraesthesia [Unknown]
  - Flushing [Unknown]
  - Nasal congestion [Unknown]
  - Abdominal discomfort [Not Recovered/Not Resolved]
  - Headache [Unknown]
  - Fatigue [Unknown]
  - Nausea [Not Recovered/Not Resolved]
  - Hyperacusis [Not Recovered/Not Resolved]
  - Nervousness [Unknown]
  - Micturition urgency [Unknown]
  - Peripheral swelling [Recovering/Resolving]
  - Myalgia [Unknown]
  - Insomnia [Not Recovered/Not Resolved]
  - Feeling hot [Unknown]
  - Malaise [Unknown]
  - Hypotension [Unknown]
  - Agitation [Unknown]
  - Hot flush [Unknown]
  - Tinnitus [Unknown]
